FAERS Safety Report 7045598-2 (Version None)
Quarter: 2010Q3

REPORT INFORMATION
  Report Type: 
  Country: None (occurrence: None)
  Receive Date: 20100929
  Receipt Date: 20100803
  Transmission Date: 20110219
  Serious: No
  Sender: FDA-Public Use
  Company Number: US-WYE-H16693610

PATIENT
  Sex: Female

DRUGS (2)
  1. PRISTIQ [Suspect]
     Dosage: 100 MG 1X PER 1 DAY; 50 MG 1X PER 1 DAY
     Dates: start: 20100101, end: 20100101
  2. PRISTIQ [Suspect]
     Dosage: 100 MG 1X PER 1 DAY; 50 MG 1X PER 1 DAY
     Dates: start: 20100101

REACTIONS (2)
  - DRUG INEFFECTIVE [None]
  - FATIGUE [None]
